FAERS Safety Report 10183610 (Version 1)
Quarter: 2014Q2

REPORT INFORMATION
  Report Type: Spontaneous
  Country: GB (occurrence: GB)
  Receive Date: 20140520
  Receipt Date: 20140520
  Transmission Date: 20141212
  Serious: Yes (Hospitalization)
  Sender: FDA-Public Use
  Company Number: GB-WATSON-2014-10047

PATIENT
  Age: 10 Month
  Sex: Male

DRUGS (1)
  1. FENTANYL (UNKNOWN) [Suspect]
     Indication: PAIN
     Dosage: 75 MCG/HR, UNK
     Route: 062

REACTIONS (5)
  - Unresponsive to stimuli [Recovered/Resolved]
  - Miosis [Recovered/Resolved]
  - Toxicity to various agents [Recovered/Resolved]
  - Accidental exposure to product by child [Unknown]
  - Accidental overdose [Recovered/Resolved]
